FAERS Safety Report 9285518 (Version 1)
Quarter: 2013Q2

REPORT INFORMATION
  Report Type: Spontaneous
  Country: US (occurrence: US)
  Receive Date: 20130513
  Receipt Date: 20130513
  Transmission Date: 20140414
  Serious: Yes (Other)
  Sender: FDA-Public Use
  Company Number: US-LUNDBECK-DKLU1090476

PATIENT
  Sex: Female

DRUGS (8)
  1. SABRIL (FOR ORAL SOLUTION) [Suspect]
     Indication: INFANTILE SPASMS
     Route: 048
     Dates: start: 20091203
  2. SABRIL (FOR ORAL SOLUTION) [Suspect]
     Route: 048
  3. SABRIL (FOR ORAL SOLUTION) [Suspect]
     Route: 048
  4. SABRIL (FOR ORAL SOLUTION) [Suspect]
     Route: 048
     Dates: start: 20091203
  5. SABRIL (FOR ORAL SOLUTION) [Suspect]
     Route: 048
  6. SABRIL (FOR ORAL SOLUTION) [Suspect]
     Route: 048
     Dates: end: 20130430
  7. PHENOBARBITAL [Concomitant]
     Indication: PRODUCT USED FOR UNKNOWN INDICATION
  8. BANZEL [Concomitant]
     Indication: INFANTILE SPASMS

REACTIONS (4)
  - Retinal disorder [Unknown]
  - Decreased activity [Unknown]
  - Communication disorder [Unknown]
  - Insomnia [Unknown]
